FAERS Safety Report 19499519 (Version 1)
Quarter: 2021Q3

REPORT INFORMATION
  Report Type: Other
  Country: CA (occurrence: CA)
  Receive Date: 20210707
  Receipt Date: 20210707
  Transmission Date: 20211014
  Serious: Yes (Hospitalization)
  Sender: FDA-Public Use
  Company Number: CA-ROCHE-2863326

PATIENT
  Age: 31 Year
  Sex: Female

DRUGS (6)
  1. BETADERM [Concomitant]
     Active Substance: BETAMETHASONE VALERATE
     Indication: SKIN DISORDER
     Dosage: 3 DF, QD
     Route: 061
     Dates: start: 2014
  2. XOLAIR [Suspect]
     Active Substance: OMALIZUMAB
     Dosage: 300 MG, EVERY 4 WEEKS (150 MG STRENGTH)
     Route: 058
     Dates: start: 20210429
  3. REACTINE (CANADA) [Concomitant]
     Active Substance: CETIRIZINE HYDROCHLORIDE
     Indication: PRODUCT USED FOR UNKNOWN INDICATION
     Dosage: 1 DF, BID
     Route: 048
     Dates: start: 201901
  4. XOLAIR [Suspect]
     Active Substance: OMALIZUMAB
     Indication: CHRONIC SPONTANEOUS URTICARIA
     Route: 058
     Dates: start: 20190613
  5. BENADRYL [Concomitant]
     Active Substance: DIPHENHYDRAMINE HYDROCHLORIDE
     Indication: PRODUCT USED FOR UNKNOWN INDICATION
     Dosage: 2 DF, PRN
     Route: 048
     Dates: start: 2016
  6. PROTOPIC [Concomitant]
     Active Substance: TACROLIMUS
     Indication: CHRONIC SPONTANEOUS URTICARIA
     Dosage: 2 DF, QD
     Route: 061
     Dates: start: 201405

REACTIONS (4)
  - Nausea [Unknown]
  - Infection [Unknown]
  - Malaise [Unknown]
  - Urticaria [Not Recovered/Not Resolved]

NARRATIVE: CASE EVENT DATE: 20190613
